FAERS Safety Report 8401814-3 (Version None)
Quarter: 2012Q2

REPORT INFORMATION
  Report Type: 
  Country: None (occurrence: None)
  Receive Date: 20120601
  Receipt Date: 20120524
  Transmission Date: 20120825
  Serious: Yes (Hospitalization, Other)
  Sender: FDA-Public Use
  Company Number: US-JNJFOC-20120504765

PATIENT
  Sex: Male
  Weight: 56.7 kg

DRUGS (1)
  1. XARELTO [Suspect]
     Indication: ATRIAL FIBRILLATION
     Route: 048

REACTIONS (3)
  - SUBDURAL HAEMATOMA [None]
  - FALL [None]
  - HAEMORRHAGE INTRACRANIAL [None]
